FAERS Safety Report 14151313 (Version 3)
Quarter: 2018Q1

REPORT INFORMATION
  Report Type: Report from Study
  Country: None (occurrence: US)
  Receive Date: 20171102
  Receipt Date: 20180228
  Transmission Date: 20180508
  Serious: Yes (Other)
  Sender: FDA-Public Use
  Company Number: US-ABBVIE-17K-163-2065998-00

PATIENT
  Sex: Female

DRUGS (2)
  1. HUMIRA [Suspect]
     Active Substance: ADALIMUMAB
     Indication: CROHN^S DISEASE
     Route: 058
  2. HUMIRA [Suspect]
     Active Substance: ADALIMUMAB
     Indication: GASTROINTESTINAL INFLAMMATION
     Route: 058
     Dates: start: 2017

REACTIONS (9)
  - Wrist fracture [Unknown]
  - Alopecia [Unknown]
  - Intestinal perforation [Unknown]
  - Drug level decreased [Unknown]
  - Gastrointestinal inflammation [Unknown]
  - Intestinal ulcer [Unknown]
  - Intestinal cyst [Unknown]
  - Procedural pain [Unknown]
  - Arthralgia [Unknown]

NARRATIVE: CASE EVENT DATE: 2017
